FAERS Safety Report 4861815-9 (Version None)
Quarter: 2005Q4

REPORT INFORMATION
  Report Type: 
  Country: None (occurrence: None)
  Receive Date: 20051129
  Receipt Date: 20051102
  Transmission Date: 20060501
  Serious: No
  Sender: FDA-Public Use
  Company Number: USA0509109305

PATIENT
  Age: 40 Year
  Sex: Male

DRUGS (1)
  1. ZYPREXA [Suspect]
     Indication: AGITATION
     Dosage: 40 MG

REACTIONS (2)
  - DRUG INEFFECTIVE [None]
  - PRESCRIBED OVERDOSE [None]
